FAERS Safety Report 9164199 (Version 5)
Quarter: 2014Q2

REPORT INFORMATION
  Report Type: Report from Study
  Country: US (occurrence: US)
  Receive Date: 20130315
  Receipt Date: 20140516
  Transmission Date: 20141212
  Serious: Yes (Hospitalization)
  Sender: FDA-Public Use
  Company Number: US-BIOGENIDEC-2013BI022294

PATIENT
  Age: 62 Year
  Sex: Female
  Weight: 88 kg

DRUGS (31)
  1. AVONEX [Suspect]
     Indication: MULTIPLE SCLEROSIS
     Route: 030
     Dates: start: 20071103, end: 201207
  2. AVONEX [Suspect]
     Indication: MULTIPLE SCLEROSIS
     Route: 030
     Dates: start: 20120629, end: 20140417
  3. DITROPAN [Concomitant]
     Route: 048
  4. POTASSIUM CHLORIDE [Concomitant]
     Route: 048
  5. ACETAMINOPHEN [Concomitant]
     Route: 048
  6. ALPRAZOLAM [Concomitant]
     Route: 048
  7. ATENOLOL-CHLORTHAL [Concomitant]
     Route: 048
  8. CALTRATE PLUS D [Concomitant]
     Route: 048
  9. CHLORTHALIDONE [Concomitant]
     Route: 048
  10. CYMBALTA [Concomitant]
     Route: 048
  11. DULCOLAX [Concomitant]
  12. FLEET ENEMA [Concomitant]
  13. FOLIC ACID [Concomitant]
     Route: 048
  14. JANTOVEN [Concomitant]
     Route: 048
  15. JANTOVEN [Concomitant]
     Route: 048
  16. LIPITOR [Concomitant]
     Route: 048
  17. LYRICA [Concomitant]
     Route: 048
  18. LYRICA [Concomitant]
     Route: 048
  19. MAALOX ADVANCED [Concomitant]
     Route: 048
  20. MILK OF MAGNESIA [Concomitant]
     Route: 048
  21. MUPIROCIN [Concomitant]
  22. OMEPRAZOLE [Concomitant]
     Route: 048
  23. OXYCODONE [Concomitant]
     Route: 048
  24. OYSTER SHELL CALCIUM [Concomitant]
     Route: 048
  25. TIZANIDINE [Concomitant]
     Route: 048
  26. TRAMADOL [Concomitant]
     Route: 048
  27. VITAMIN E [Concomitant]
     Route: 048
  28. WELLBUTRIN [Concomitant]
     Route: 048
  29. ASPIRIN [Concomitant]
     Route: 048
  30. MECLIZINE [Concomitant]
     Route: 048
  31. NEXIUM [Concomitant]
     Route: 048

REACTIONS (10)
  - Embolic cerebral infarction [Not Recovered/Not Resolved]
  - Back pain [Recovered/Resolved]
  - Contusion [Recovered/Resolved]
  - Injection site mass [Recovered/Resolved]
  - Coordination abnormal [Recovered/Resolved]
  - Multiple sclerosis [Unknown]
  - Injection site pain [Recovered/Resolved]
  - Influenza like illness [Recovered/Resolved]
  - Pain [Recovered/Resolved]
  - Injection site reaction [Recovered/Resolved]
